FAERS Safety Report 5385208-3 (Version None)
Quarter: 2007Q3

REPORT INFORMATION
  Report Type: 
  Country: None (occurrence: None)
  Receive Date: 20070709
  Receipt Date: 20070622
  Transmission Date: 20080115
  Serious: Yes (Life-Threatening, Hospitalization)
  Sender: FDA-Public Use
  Company Number: DSA_30154_2007

PATIENT
  Sex: Female

DRUGS (3)
  1. TAVOR /00273201/ (TAVOR) 1 MG [Suspect]
     Dosage: (10 MG 1X ORAL)
     Route: 048
     Dates: start: 20070621, end: 20070621
  2. AKINETON [Suspect]
     Dosage: (40 MG 1X ORAL)
     Route: 048
     Dates: start: 20070621, end: 20070621
  3. CANNABIS (CANNABIS) [Suspect]
     Dates: start: 20070621, end: 20070621

REACTIONS (5)
  - DRUG ABUSER [None]
  - MULTIPLE DRUG OVERDOSE INTENTIONAL [None]
  - MYDRIASIS [None]
  - SOMNOLENCE [None]
  - SUICIDE ATTEMPT [None]
